FAERS Safety Report 7802034-3 (Version None)
Quarter: 2011Q4

REPORT INFORMATION
  Report Type: 
  Country: None (occurrence: None)
  Receive Date: 20111005
  Receipt Date: 20110920
  Transmission Date: 20120403
  Serious: Yes (Other)
  Sender: FDA-Public Use
  Company Number: JPI-P-017215

PATIENT
  Age: 64 Year
  Sex: Female

DRUGS (2)
  1. XYREM [Suspect]
     Indication: NARCOLEPSY
     Dosage: 6 GM (3 GM,2 IN 1 D),ORAL ; ORAL ; 7 GM (3.5 GM,2 IN 1 D),ORAL
     Route: 048
     Dates: start: 20101214
  2. XYREM [Suspect]
     Indication: NARCOLEPSY
     Dosage: 6 GM (3 GM,2 IN 1 D),ORAL ; ORAL ; 7 GM (3.5 GM,2 IN 1 D),ORAL
     Route: 048
     Dates: start: 20051212

REACTIONS (1)
  - MYOCARDIAL INFARCTION [None]
